FAERS Safety Report 23117160 (Version 1)
Quarter: 2023Q4

REPORT INFORMATION
  Report Type: Spontaneous
  Country: DZ (occurrence: DZ)
  Receive Date: 20231027
  Receipt Date: 20231027
  Transmission Date: 20240110
  Serious: Yes (Hospitalization, Other)
  Sender: FDA-Public Use
  Company Number: DZ-TAKEDA-2023TUS097946

PATIENT
  Age: 8 Year
  Sex: Male

DRUGS (3)
  1. ADVATE [Suspect]
     Active Substance: ANTIHEMOPHILIC FACTOR, HUMAN RECOMBINANT
     Indication: Haemophilia
     Dosage: UNK UNK, BID
     Route: 065
  2. ADVATE [Suspect]
     Active Substance: ANTIHEMOPHILIC FACTOR, HUMAN RECOMBINANT
     Indication: Haemophilia
     Dosage: UNK UNK, BID
     Route: 065
  3. ADVATE [Suspect]
     Active Substance: ANTIHEMOPHILIC FACTOR, HUMAN RECOMBINANT
     Indication: Haemophilia
     Dosage: UNK UNK, BID
     Route: 065

REACTIONS (9)
  - Feeling cold [Unknown]
  - Hyperhidrosis [Unknown]
  - Tachycardia [Unknown]
  - Syncope [Unknown]
  - Pruritus [Unknown]
  - Chills [Unknown]
  - Headache [Unknown]
  - Hot flush [Unknown]
  - Swelling [Unknown]
